FAERS Safety Report 25287304 (Version 1)
Quarter: 2025Q2

REPORT INFORMATION
  Report Type: Spontaneous
  Country: US (occurrence: US)
  Receive Date: 20250509
  Receipt Date: 20250509
  Transmission Date: 20250717
  Serious: Yes (Other)
  Sender: BAUSCH AND LOMB
  Company Number: US-BAUSCH-BL-2025-006000

PATIENT
  Age: 60 Year
  Sex: Male

DRUGS (11)
  1. RIFAXIMIN [Suspect]
     Active Substance: RIFAXIMIN
     Indication: Hyperammonaemia
     Route: 065
  2. RIFAXIMIN [Suspect]
     Active Substance: RIFAXIMIN
     Indication: Ureaplasma infection
  3. LACTULOSE [Suspect]
     Active Substance: LACTULOSE
     Indication: Hyperammonaemia
     Route: 065
  4. LACTULOSE [Suspect]
     Active Substance: LACTULOSE
     Indication: Ureaplasma infection
  5. DOXYCYCLINE [Suspect]
     Active Substance: DOXYCYCLINE
     Indication: Antibiotic prophylaxis
     Route: 065
  6. AZITHROMYCIN [Suspect]
     Active Substance: AZITHROMYCIN
     Indication: Antibiotic prophylaxis
     Route: 065
  7. BASILIXIMAB [Concomitant]
     Active Substance: BASILIXIMAB
     Indication: Immunosuppressant drug therapy
  8. METHYLPREDNISOLONE [Concomitant]
     Active Substance: METHYLPREDNISOLONE
     Indication: Immunosuppressant drug therapy
  9. MYCOPHENOLIC ACID [Concomitant]
     Active Substance: MYCOPHENOLIC ACID
     Indication: Immunosuppressant drug therapy
  10. TACROLIMUS [Concomitant]
     Active Substance: TACROLIMUS
     Indication: Immunosuppressant drug therapy
  11. FAMCICLOVIR [Concomitant]
     Active Substance: FAMCICLOVIR
     Indication: Antiviral prophylaxis

REACTIONS (2)
  - Pneumonia [Recovering/Resolving]
  - Drug effective for unapproved indication [Unknown]
